FAERS Safety Report 8187031-3 (Version None)
Quarter: 2012Q1

REPORT INFORMATION
  Report Type: 
  Country: None (occurrence: None)
  Receive Date: 20120306
  Receipt Date: 20120229
  Transmission Date: 20120608
  Serious: Yes (Other)
  Sender: FDA-Public Use
  Company Number: JP-SANOFI-AVENTIS-2012SA014570

PATIENT

DRUGS (1)
  1. PLAVIX [Suspect]
     Dosage: FORM : INTERNAL USE
     Route: 065

REACTIONS (1)
  - COGNITIVE DISORDER [None]
